FAERS Safety Report 18338406 (Version 1)
Quarter: 2020Q4

REPORT INFORMATION
  Report Type: Spontaneous
  Country: JP (occurrence: JP)
  Receive Date: 20201002
  Receipt Date: 20201002
  Transmission Date: 20210113
  Serious: Yes (Death)
  Sender: FDA-Public Use
  Company Number: JP-PFIZER INC-2020377863

PATIENT
  Age: 8 Decade
  Sex: Male

DRUGS (4)
  1. MUCOSOLVAN [Concomitant]
     Active Substance: AMBROXOL HYDROCHLORIDE
     Dosage: UNK
  2. ANAEMETRO [Suspect]
     Active Substance: METRONIDAZOLE
     Dosage: UNK
  3. URSO [Concomitant]
     Active Substance: URSODIOL
     Dosage: UNK
  4. MUCODYNE [Concomitant]
     Active Substance: CARBOCYSTEINE
     Dosage: UNK

REACTIONS (1)
  - Death [Fatal]
